FAERS Safety Report 7124066-3 (Version None)
Quarter: 2010Q4

REPORT INFORMATION
  Report Type: 
  Country: None (occurrence: None)
  Receive Date: 20101126
  Receipt Date: 20101116
  Transmission Date: 20110411
  Serious: Yes (Other)
  Sender: FDA-Public Use
  Company Number: BR-ELI_LILLY_AND_COMPANY-BR201011004329

PATIENT
  Sex: Female

DRUGS (5)
  1. FORTEO [Suspect]
     Indication: OSTEOPOROSIS
     Dosage: UNK, UNKNOWN
     Route: 065
     Dates: start: 20080901, end: 20100701
  2. CALCIUM [Concomitant]
     Dosage: 600 MG, DAILY (1/D)
  3. OMEPRAZOLE [Concomitant]
     Dosage: 20 MG, DAILY (1/D)
  4. HIDROCLOROTIAZIDA [Concomitant]
     Dosage: 25 MG, UNK
  5. CHLOROQUINE DIPHOSPHATE [Concomitant]
     Dosage: 200 MG, DAILY (1/D)

REACTIONS (3)
  - PAIN IN EXTREMITY [None]
  - UPPER LIMB FRACTURE [None]
  - VISUAL IMPAIRMENT [None]
